FAERS Safety Report 13581153 (Version 1)
Quarter: 2017Q2

REPORT INFORMATION
  Report Type: Spontaneous
  Country: US (occurrence: US)
  Receive Date: 20170525
  Receipt Date: 20170525
  Transmission Date: 20170830
  Serious: No
  Sender: FDA-Public Use
  Company Number: US-GLAXOSMITHKLINE-US2017GSK078234

PATIENT
  Sex: Male

DRUGS (2)
  1. JALYN [Suspect]
     Active Substance: DUTASTERIDE\TAMSULOSIN HYDROCHLORIDE
     Dosage: 0.4 MG, UNK
  2. JALYN [Suspect]
     Active Substance: DUTASTERIDE\TAMSULOSIN HYDROCHLORIDE
     Indication: PULMONARY ARTERIAL HYPERTENSION
     Dosage: 0.5 MG, UNK
     Dates: start: 2010

REACTIONS (2)
  - Drug dose omission [Unknown]
  - Product use in unapproved indication [Unknown]
